FAERS Safety Report 6772024-0 (Version None)
Quarter: 2010Q2

REPORT INFORMATION
  Report Type: 
  Country: None (occurrence: None)
  Receive Date: 20100616
  Receipt Date: 20100609
  Transmission Date: 20101027
  Serious: Yes (Hospitalization)
  Sender: FDA-Public Use
  Company Number: FR-B.I. PHARMACEUTICALS,INC./RIDGEFIELD-2010-FF-00492FF

PATIENT
  Sex: Male

DRUGS (13)
  1. MECIR LP 0.4 [Suspect]
     Dosage: 0.4 MG
     Route: 048
     Dates: end: 20100414
  2. LANSOPRAZOLE [Suspect]
     Dosage: 30 MG
     Route: 048
     Dates: start: 20100223, end: 20100414
  3. EFFERALGAN CODEIN [Suspect]
     Route: 048
  4. LAMALINE [Suspect]
     Route: 048
     Dates: start: 20100402
  5. ROPINIROLE HYDROCHLORIDE [Suspect]
     Dosage: 0.5 MG
     Route: 048
     Dates: end: 20100414
  6. FUROSEMIDE WINTHROP [Suspect]
     Dosage: 40 MG
     Route: 048
     Dates: end: 20100414
  7. PRAVASTATINE WINTHROP [Suspect]
     Dosage: 20 MG
     Route: 048
     Dates: end: 20100414
  8. PNEUMOREL [Suspect]
     Dosage: 160 MG
     Route: 048
     Dates: end: 20100414
  9. AMIODARONE [Concomitant]
     Dates: start: 20081101
  10. PREVISCAN [Concomitant]
  11. CORTANCYL [Concomitant]
  12. BECLONE [Concomitant]
  13. VENTOLIN [Concomitant]

REACTIONS (8)
  - AGRANULOCYTOSIS [None]
  - BACK PAIN [None]
  - CHILLS [None]
  - CHOLESTASIS [None]
  - CYTOLYTIC HEPATITIS [None]
  - HYPERTHERMIA [None]
  - LYMPHOPENIA [None]
  - NEUTROPENIA [None]
